FAERS Safety Report 16543169 (Version 1)
Quarter: 2019Q3

REPORT INFORMATION
  Report Type: Spontaneous
  Country: JP (occurrence: JP)
  Receive Date: 20190709
  Receipt Date: 20190709
  Transmission Date: 20191004
  Serious: Yes (Death, Other)
  Sender: FDA-Public Use
  Company Number: JP-BRISTOL-MYERS SQUIBB COMPANY-BMS-2018-124918

PATIENT
  Age: 81 Year
  Sex: Female
  Weight: 48 kg

DRUGS (4)
  1. JANUVIA [Concomitant]
     Active Substance: SITAGLIPTIN PHOSPHATE
     Indication: DIABETES MELLITUS
     Dosage: 50 MILLIGRAM, Q12H
     Route: 048
     Dates: start: 20191116
  2. MAGMITT [Concomitant]
     Active Substance: MAGNESIUM OXIDE
     Indication: CONSTIPATION
     Dosage: 330 MILLIGRAM, Q12H
     Route: 048
     Dates: start: 20181116
  3. FUROSEMIDE. [Concomitant]
     Active Substance: FUROSEMIDE
     Indication: ASCITES
     Dosage: 20 MILLIGRAM, QD
     Route: 048
     Dates: start: 20181116
  4. OPDIVO [Suspect]
     Active Substance: NIVOLUMAB
     Indication: GASTRIC CANCER
     Dosage: 240 MG/DAY
     Route: 041
     Dates: start: 20181116, end: 20181130

REACTIONS (1)
  - Death [Fatal]

NARRATIVE: CASE EVENT DATE: 20190128
